FAERS Safety Report 9320613 (Version 3)
Quarter: 2013Q2

REPORT INFORMATION
  Report Type: Spontaneous
  Country: JP (occurrence: JP)
  Receive Date: 20130531
  Receipt Date: 20130614
  Transmission Date: 20140414
  Serious: Yes (Other)
  Sender: FDA-Public Use
  Company Number: JP-GE HEALTHCARE MEDICAL DIAGNOSTICS-OMPQ-NO-1305S-0667

PATIENT
  Age: 84 Year
  Sex: Female

DRUGS (17)
  1. OMNIPAQUE [Suspect]
     Indication: PRODUCT USED FOR UNKNOWN INDICATION
     Route: 042
     Dates: start: 20130520, end: 20130520
  2. OMNIPAQUE [Suspect]
     Indication: DIAGNOSTIC PROCEDURE
  3. SALICYLIC PETROLATUM [Concomitant]
     Indication: HYPERKERATOSIS
     Route: 065
     Dates: start: 20130313
  4. ANTEBATE [Concomitant]
     Indication: HYPERKERATOSIS
     Route: 065
     Dates: start: 20130313
  5. HIRUDOID [Concomitant]
     Indication: HYPERKERATOSIS
     Route: 065
     Dates: start: 20130313
  6. LIVACT [Concomitant]
     Indication: LUNG NEOPLASM MALIGNANT
     Route: 065
     Dates: start: 20130313
  7. LIVACT [Concomitant]
     Indication: NON-ALCOHOLIC STEATOHEPATITIS
  8. RABEPRAZOLE SODIUM [Concomitant]
     Indication: LUNG NEOPLASM MALIGNANT
     Route: 065
     Dates: start: 20130313
  9. RABEPRAZOLE SODIUM [Concomitant]
     Indication: NON-ALCOHOLIC STEATOHEPATITIS
  10. PORTOLAC [Concomitant]
     Indication: LUNG NEOPLASM MALIGNANT
     Route: 065
     Dates: start: 20130313
  11. PORTOLAC [Concomitant]
     Indication: NON-ALCOHOLIC STEATOHEPATITIS
  12. URSO [Concomitant]
     Indication: LUNG NEOPLASM MALIGNANT
     Route: 065
     Dates: start: 20130313
  13. URSO [Concomitant]
     Indication: NON-ALCOHOLIC STEATOHEPATITIS
  14. ALDACTONE A [Concomitant]
     Indication: LUNG NEOPLASM MALIGNANT
     Route: 065
     Dates: start: 20130313
  15. ALDACTONE A [Concomitant]
     Indication: NON-ALCOHOLIC STEATOHEPATITIS
  16. KANAMYCIN [Concomitant]
     Indication: LUNG NEOPLASM MALIGNANT
     Route: 065
     Dates: start: 20130313
  17. KANAMYCIN [Concomitant]
     Indication: NON-ALCOHOLIC STEATOHEPATITIS

REACTIONS (1)
  - Shock [Recovered/Resolved]
